FAERS Safety Report 14530807 (Version 1)
Quarter: 2018Q1

REPORT INFORMATION
  Report Type: Spontaneous
  Country: ES (occurrence: ES)
  Receive Date: 20180214
  Receipt Date: 20180214
  Transmission Date: 20180509
  Serious: Yes (Hospitalization)
  Sender: FDA-Public Use
  Company Number: ES-PFIZER INC-2018060627

PATIENT
  Age: 77 Year
  Sex: Female

DRUGS (6)
  1. TRANKIMAZIN [Suspect]
     Active Substance: ALPRAZOLAM
     Indication: GENERALISED ANXIETY DISORDER
     Dosage: 1 DF, 3X/DAY (1 IN THE MORNING, 1 AFTER LUNCH AND 1 AT NIGHT)
  2. SEGURIL [Concomitant]
     Active Substance: FUROSEMIDE
     Dosage: UNK
  3. ALDACTONE [Suspect]
     Active Substance: SPIRONOLACTONE
     Dosage: 25 UNK, UNK
  4. LOSARTAN. [Concomitant]
     Active Substance: LOSARTAN
     Dosage: UNK
  5. TRANKIMAZIN [Suspect]
     Active Substance: ALPRAZOLAM
     Indication: PHOBIA
  6. SERTRALINE [Concomitant]
     Active Substance: SERTRALINE HYDROCHLORIDE
     Dosage: UNK

REACTIONS (2)
  - Renal disorder [Unknown]
  - Cardiac failure [Unknown]
